FAERS Safety Report 13918782 (Version 1)
Quarter: 2017Q3

REPORT INFORMATION
  Report Type: Spontaneous
  Country: US (occurrence: None)
  Receive Date: 20170828
  Receipt Date: 20170828
  Transmission Date: 20171127
  Serious: No
  Sender: FDA-Public Use
  Company Number: None

PATIENT
  Age: 64 Year
  Sex: Female

DRUGS (1)
  1. EPCLUSA [Suspect]
     Active Substance: SOFOSBUVIR\VELPATASVIR

REACTIONS (5)
  - Respiration abnormal [None]
  - Peripheral swelling [None]
  - Erythema [None]
  - Malaise [None]
  - Adjustment disorder with depressed mood [None]

NARRATIVE: CASE EVENT DATE: 20170827
